FAERS Safety Report 7282634-2 (Version None)
Quarter: 2011Q1

REPORT INFORMATION
  Report Type: 
  Country: None (occurrence: None)
  Receive Date: 20110209
  Receipt Date: 20110128
  Transmission Date: 20110831
  Serious: Yes (Other)
  Sender: FDA-Public Use
  Company Number: KR-ELI_LILLY_AND_COMPANY-KR201008000899

PATIENT
  Age: 75 Year
  Sex: Female
  Weight: 43 kg

DRUGS (13)
  1. ELCATONIN [Concomitant]
     Dosage: 10 U, 2/W
     Route: 030
     Dates: start: 20100601
  2. AFLOQUALONE [Concomitant]
     Dosage: 20 MG, 3/D FOR ONE MONTH
     Route: 065
     Dates: start: 20100601
  3. ACETAMINOPHEN [Concomitant]
     Dosage: UNK, COMBINATION OF ACETAMINOPHEN AND TRAMADOL THREE TIMES DAILY FOR A MONTH.
     Route: 065
     Dates: start: 20100601
  4. ALVERINE CITRATE [Concomitant]
     Dosage: UNK, COMBINATION OF ALVERINE CITRATE AND SIMETHICONE 2 TIMES DAILY FOR A MONTH
     Route: 065
     Dates: start: 20100601
  5. LOXOPROFEN [Concomitant]
     Dosage: UNK, 3/D FOR A WEEK
     Route: 065
     Dates: start: 20100601
  6. FORTEO [Suspect]
     Indication: OSTEOPOROSIS
     Dosage: UNK, UNKNOWN
     Dates: start: 20100720
  7. TRAMADOL HCL [Concomitant]
     Dosage: UNK, COMBINATION OF ACETAMINOPHEN AND TRAMADOL THREE TIMES DAILY FOR A MONTH.
     Route: 065
     Dates: start: 20100601
  8. AFLOQUALONE [Concomitant]
     Dosage: UNK, 2/D FIRST AND SECOND WEEK OF JUL-2010
     Route: 065
     Dates: start: 20100701
  9. SIMETHICONE [Concomitant]
     Dosage: UNK, COMBINATION OF ALVERINE CITRATE AND SIMETHICONE 3 TIMES DAILY FOR 1 MONTH
     Route: 065
     Dates: start: 20100601
  10. METOCLOPRAMIDE [Concomitant]
     Dosage: UNK, 3/D
     Route: 065
     Dates: start: 20100601
  11. ACETAMINOPHEN [Concomitant]
     Dosage: 650 MG, 3/D
     Route: 065
     Dates: start: 20100601
  12. OYSTER SHELL CALCIUM [Concomitant]
     Dosage: 500 MG, DAILY (1/D)
     Route: 065
     Dates: start: 20100601
  13. CELECOXIB [Concomitant]
     Dosage: 200 MG, DAILY (1/D) 1ST AND SECOND WEEK OF JUL-2010
     Route: 065
     Dates: start: 20100701

REACTIONS (5)
  - OVARIAN CYST [None]
  - PULMONARY ARTERY THROMBOSIS [None]
  - CARBOHYDRATE ANTIGEN 125 INCREASED [None]
  - VENA CAVA THROMBOSIS [None]
  - PELVIC VENOUS THROMBOSIS [None]
